FAERS Safety Report 19012526 (Version 1)
Quarter: 2021Q1

REPORT INFORMATION
  Report Type: Spontaneous
  Country: JP (occurrence: JP)
  Receive Date: 20210316
  Receipt Date: 20210316
  Transmission Date: 20210420
  Serious: Yes (Other)
  Sender: FDA-Public Use
  Company Number: JP-MYLANLABS-2021M1014776

PATIENT
  Age: 50 Year
  Sex: Female

DRUGS (4)
  1. PREGABALIN. [Suspect]
     Active Substance: PREGABALIN
     Indication: NEURALGIA
     Dosage: 50 MILLIGRAM, QD
     Route: 048
     Dates: start: 20201218, end: 20210304
  2. LEXOTAN [Concomitant]
     Active Substance: BROMAZEPAM
     Indication: PRURITUS
     Dosage: 6 MILLIGRAM, QD
     Route: 048
     Dates: start: 2010, end: 20210304
  3. PARACETAMOL/TRAMADOL [Suspect]
     Active Substance: ACETAMINOPHEN\TRAMADOL
     Indication: HEADACHE
     Dosage: 2 DOSAGE FORM, QD
     Route: 048
     Dates: start: 20210218, end: 20210304
  4. DOMPERIDON                         /00498201/ [Suspect]
     Active Substance: DOMPERIDONE
     Indication: NAUSEA
     Dosage: 20 MILLIGRAM, QD
     Route: 048
     Dates: start: 20210218, end: 20210304

REACTIONS (2)
  - Off label use [Unknown]
  - Hyperprolactinaemia [Unknown]

NARRATIVE: CASE EVENT DATE: 20210222
